FAERS Safety Report 25493631 (Version 2)
Quarter: 2025Q3

REPORT INFORMATION
  Report Type: Spontaneous
  Country: BR (occurrence: BR)
  Receive Date: 20250630
  Receipt Date: 20250707
  Transmission Date: 20251021
  Serious: No
  Sender: MYLAN
  Company Number: BR-MYLANLABS-2025M1053528

PATIENT
  Age: 69 Year
  Sex: Female
  Weight: 78 kg

DRUGS (6)
  1. CELEBRA [Suspect]
     Active Substance: CELECOXIB
     Indication: Tendonitis
     Dosage: 200 MILLIGRAM, QD (ONCE A DAY)
  2. CELEBRA [Suspect]
     Active Substance: CELECOXIB
  3. CELEBRA [Suspect]
     Active Substance: CELECOXIB
     Dosage: 200 MILLIGRAM, QD (ONCE DAILY)
     Dates: start: 20250618, end: 20250619
  4. LEVOTHYROXINE SODIUM [Concomitant]
     Active Substance: LEVOTHYROXINE SODIUM
     Indication: Hypothyroidism
     Dosage: 75 MICROGRAM, QD
  5. DULOXETINE [Concomitant]
     Active Substance: DULOXETINE
     Indication: Fibromyalgia
     Dosage: 30 MILLIGRAM, QD
  6. ATORVASTATIN [Concomitant]
     Active Substance: ATORVASTATIN
     Indication: Hypercholesterolaemia

REACTIONS (3)
  - Diarrhoea [Not Recovered/Not Resolved]
  - Pyrexia [Recovered/Resolved]
  - Off label use [Recovered/Resolved]

NARRATIVE: CASE EVENT DATE: 20240901
